FAERS Safety Report 9408048 (Version 3)
Quarter: 2013Q4

REPORT INFORMATION
  Report Type: Spontaneous
  Country: US (occurrence: US)
  Receive Date: 20130718
  Receipt Date: 20131004
  Transmission Date: 20140711
  Serious: Yes (Hospitalization, Disabling, Other)
  Sender: FDA-Public Use
  Company Number: US-009507513-1202USA02467

PATIENT
  Sex: Female
  Weight: 68.27 kg

DRUGS (6)
  1. FOSAMAX [Suspect]
     Indication: OSTEOPOROSIS
     Dosage: 10 MG, UNK
     Route: 048
     Dates: start: 19970828, end: 20001020
  2. FOSAMAX [Suspect]
     Dosage: 70 MG, UNK
     Route: 048
     Dates: start: 20001020, end: 20080206
  3. FOSAMAX [Suspect]
     Indication: OSTEOPOROSIS
     Route: 048
  4. ALENDRONATE SODIUM [Suspect]
     Indication: OSTEOPOROSIS
     Dosage: 70 MG, UNK
     Route: 048
     Dates: start: 20080206, end: 20100113
  5. CALCIUM (UNSPECIFIED) [Concomitant]
     Dosage: 600 MG, QD
     Dates: start: 1990
  6. VITAMINS (UNSPECIFIED) [Concomitant]
     Dosage: 2000 IU, QD
     Dates: start: 1990

REACTIONS (14)
  - Femur fracture [Not Recovered/Not Resolved]
  - Intramedullary rod insertion [Unknown]
  - Medical device removal [Unknown]
  - Hypoxia [Unknown]
  - Low turnover osteopathy [Not Recovered/Not Resolved]
  - Cholecystectomy [Unknown]
  - Hypothyroidism [Unknown]
  - Colitis ulcerative [Unknown]
  - Hyperlipidaemia [Unknown]
  - Hypertension [Unknown]
  - Hiatus hernia [Unknown]
  - Chronic obstructive pulmonary disease [Not Recovered/Not Resolved]
  - Atelectasis [Unknown]
  - Osteopenia [Unknown]
